FAERS Safety Report 8834687 (Version 1)
Quarter: 2012Q4

REPORT INFORMATION
  Report Type: 
  Country: AT (occurrence: AT)
  Receive Date: 20121010
  Receipt Date: 20121010
  Transmission Date: 20130627
  Serious: Yes (Hospitalization)
  Sender: FDA-Public Use
  Company Number: AT-ASTRAZENECA-2012SE76060

PATIENT
  Age: 48 Year
  Sex: Female

DRUGS (16)
  1. HYDROCHLOROTHIAZIDE AND LISINOPRIL [Suspect]
     Dosage: 20+25 MG, DAILY
     Route: 048
     Dates: start: 2011
  2. ZYPREXA [Suspect]
     Route: 065
     Dates: start: 20120211, end: 20120215
  3. NOZINAN [Suspect]
     Route: 065
     Dates: start: 20120215, end: 20120216
  4. NOZINAN [Suspect]
     Route: 065
     Dates: start: 20120217, end: 20120219
  5. NOZINAN [Suspect]
     Route: 065
     Dates: start: 20120220, end: 20120222
  6. NOZINAN [Suspect]
     Route: 065
     Dates: start: 20120223, end: 20120224
  7. PRAXITEN [Concomitant]
     Dates: start: 20120211, end: 20120215
  8. EUTHYROX [Concomitant]
     Dates: start: 2010
  9. KALIORAL [Concomitant]
     Dates: start: 20120211, end: 20120219
  10. IVADAL [Concomitant]
     Dates: start: 20120212, end: 20120223
  11. IVADAL [Concomitant]
     Dates: start: 20120224
  12. RISPERDAL [Concomitant]
     Dates: start: 20120215, end: 20120216
  13. RISPERDAL [Concomitant]
     Dates: start: 20120217
  14. PSYCHOPAX [Concomitant]
     Dates: start: 20120215, end: 20120220
  15. PSYCHOPAX [Concomitant]
     Dates: start: 20120221, end: 20120224
  16. PSYCHOPAX [Concomitant]
     Dates: start: 20120225

REACTIONS (2)
  - Agitation [Recovered/Resolved]
  - Hyponatraemia [Recovered/Resolved]
